FAERS Safety Report 20485116 (Version 1)
Quarter: 2022Q1

REPORT INFORMATION
  Report Type: Spontaneous
  Country: US (occurrence: US)
  Receive Date: 20220217
  Receipt Date: 20220217
  Transmission Date: 20220423
  Serious: No
  Sender: FDA-Public Use
  Company Number: US-PFIZER INC-202101098205

PATIENT
  Age: 68 Year
  Sex: Male

DRUGS (2)
  1. SOMAVERT [Suspect]
     Active Substance: PEGVISOMANT
     Indication: Acromegaly
     Dosage: 30 MG, 1X/DAY
     Route: 058
  2. SOMAVERT [Suspect]
     Active Substance: PEGVISOMANT
     Indication: Gigantism

REACTIONS (1)
  - Insulin-like growth factor abnormal [Not Recovered/Not Resolved]
